FAERS Safety Report 8362420 (Version 2)
Quarter: 2015Q1

REPORT INFORMATION
  Report Type: Report from Study
  Country: US (occurrence: US)
  Receive Date: 20120130
  Receipt Date: 20150225
  Transmission Date: 20150721
  Serious: Yes (Death)
  Sender: FDA-Public Use
  Company Number: US-ROCHE-1034510

PATIENT
  Age: 53 Year
  Sex: Female
  Weight: 64.5 kg

DRUGS (41)
  1. TRAZODONE HYDROCHLORIDE. [Concomitant]
     Active Substance: TRAZODONE HYDROCHLORIDE
     Dosage: AT BED TIME
     Route: 048
  2. CISPLATIN. [Concomitant]
     Active Substance: CISPLATIN
  3. ONDANSETRON HCL [Concomitant]
     Active Substance: ONDANSETRON HYDROCHLORIDE
     Route: 042
  4. TUSSIONEX PENNKINETIC [Concomitant]
     Active Substance: CHLORPHENIRAMINE\HYDROCODONE
     Dosage: 8-10MG/5ML 1 TABLESPOONFUL
     Route: 065
  5. ALBUTEROL SULFATE. [Concomitant]
     Active Substance: ALBUTEROL SULFATE
     Indication: WHEEZING
  6. ACETAMINOPHEN AND CODEINE [Concomitant]
     Active Substance: ACETAMINOPHEN\CODEINE PHOSPHATE
     Dosage: AS NEEDED?300-30 MG
     Route: 048
  7. GEMZAR [Concomitant]
     Active Substance: GEMCITABINE HYDROCHLORIDE
     Route: 042
  8. MARINOL (UNITED STATES) [Concomitant]
     Route: 048
  9. ADVAIR DISKUS [Concomitant]
     Active Substance: FLUTICASONE PROPIONATE\SALMETEROL XINAFOATE
     Dosage: 250-50 MCG/DOSE?ONE INHALATION
     Route: 065
  10. FENTANYL TRANSDERMAL SYSTEM [Concomitant]
     Active Substance: FENTANYL
     Dosage: 100 MCG/HR
     Route: 065
  11. ETOPOSIDE. [Concomitant]
     Active Substance: ETOPOSIDE
     Dosage: 20 MG/ML
     Route: 065
  12. ZOMETA [Concomitant]
     Active Substance: ZOLEDRONIC ACID
     Dosage: IVPB IN NS 100 ML OVER 30 MINUTES
     Route: 065
  13. OXYCODONE HCL [Concomitant]
     Active Substance: OXYCODONE HYDROCHLORIDE
     Dosage: AS NEEDED
     Route: 048
  14. OXYCODONE HCL [Concomitant]
     Active Substance: OXYCODONE HYDROCHLORIDE
     Dosage: 2 TABLETS
     Route: 048
  15. DEXAMETHASONE SODIUM PHOSPHATE. [Concomitant]
     Active Substance: DEXAMETHASONE SODIUM PHOSPHATE
     Route: 042
  16. LIDODERM [Concomitant]
     Active Substance: LIDOCAINE
     Route: 065
  17. BUSPIRONE [Concomitant]
     Active Substance: BUSPIRONE HYDROCHLORIDE
     Route: 048
  18. TAXOTERE [Concomitant]
     Active Substance: DOCETAXEL
  19. CLOBETASOL PROPIONATE OINTMENT [Concomitant]
     Route: 061
  20. BENADRYL [Concomitant]
     Active Substance: DIPHENHYDRAMINE HYDROCHLORIDE
     Dosage: 50 MG/ML
     Route: 065
  21. ZOMIG [Concomitant]
     Active Substance: ZOLMITRIPTAN
     Indication: MIGRAINE
     Dosage: DISSOLVE 1 TABLET ON TONGUE AND SWALLOW AT THE ONSET OF MIGRAINE
     Route: 048
  22. FLUTICASONE PROPIONATE. [Concomitant]
     Active Substance: FLUTICASONE PROPIONATE
     Dosage: 50 MCG/ACT SUSPENSION
     Route: 065
  23. PREDNISONE. [Concomitant]
     Active Substance: PREDNISONE
     Route: 048
  24. SPIRIVA [Concomitant]
     Active Substance: TIOTROPIUM BROMIDE MONOHYDRATE
     Dosage: INHALE CONTENTS OF CAPSULE
     Route: 065
  25. ALBUTEROL SULFATE. [Concomitant]
     Active Substance: ALBUTEROL SULFATE
     Indication: COUGH
     Dosage: 2.5MG/3ML
     Route: 065
  26. PROCHLORPERAZINE MALEATE. [Concomitant]
     Active Substance: PROCHLORPERAZINE MALEATE
     Dosage: 1 TABLET
     Route: 048
  27. ALPRAZOLAM. [Concomitant]
     Active Substance: ALPRAZOLAM
     Dosage: 3 TABLETS DAILY AS NEEDED
     Route: 048
  28. NAVELBINE [Concomitant]
     Active Substance: VINORELBINE TARTRATE
  29. CYANOCOBALAMIN. [Concomitant]
     Active Substance: CYANOCOBALAMIN
     Route: 030
  30. CYCLOBENZAPRINE HCL [Concomitant]
     Active Substance: CYCLOBENZAPRINE HYDROCHLORIDE
     Dosage: AS NEEDED
     Route: 048
  31. BENZONATATE. [Concomitant]
     Active Substance: BENZONATATE
     Route: 048
  32. AVASTIN [Suspect]
     Active Substance: BEVACIZUMAB
     Indication: LARGE CELL LUNG CANCER METASTATIC
     Route: 042
     Dates: start: 20060609
  33. LORAZEPAM. [Concomitant]
     Active Substance: LORAZEPAM
     Dosage: AS NEEDED
     Route: 048
  34. ZOLOFT [Concomitant]
     Active Substance: SERTRALINE HYDROCHLORIDE
     Dosage: 2 TABS DAILY
     Route: 048
  35. ALBUTEROL. [Concomitant]
     Active Substance: ALBUTEROL
     Dosage: 90 MCG/ACT INHALE
     Route: 065
  36. FAMOTIDINE. [Concomitant]
     Active Substance: FAMOTIDINE
     Route: 042
  37. LIPITOR [Concomitant]
     Active Substance: ATORVASTATIN CALCIUM
     Route: 048
  38. DIAZEPAM. [Concomitant]
     Active Substance: DIAZEPAM
     Route: 048
  39. ACYCLOVIR. [Concomitant]
     Active Substance: ACYCLOVIR
     Route: 048
  40. EMEND [Concomitant]
     Active Substance: APREPITANT
     Dosage: TRIFOLD 80 + 125 MG?AS DIRECTED
     Route: 065
  41. CIMETIDINE HCL [Concomitant]

REACTIONS (3)
  - Death [Fatal]
  - Confusional state [Unknown]
  - Delusion [Unknown]

NARRATIVE: CASE EVENT DATE: 20070218
